FAERS Safety Report 5712673-1 (Version None)
Quarter: 2008Q2

REPORT INFORMATION
  Report Type: 
  Country: None (occurrence: None)
  Receive Date: 20080418
  Receipt Date: 20070112
  Transmission Date: 20081010
  Serious: Yes (Other)
  Sender: FDA-Public Use
  Company Number: CHPA2006US12856

PATIENT
  Age: 76 Year
  Sex: Male
  Weight: 95.2 kg

DRUGS (6)
  1. MAALOX ANTIACID/ANTIGAS MAX STR MULTI SYMPTOM [Suspect]
     Indication: STOMACH DISCOMFORT
     Dosage: 2 TSP, BID, ORAL
     Route: 048
     Dates: start: 20061208
  2. ADVIL [Suspect]
     Indication: LIMB INJURY
     Dosage: 400 MG, BID, ORAL
     Route: 048
  3. ZOCOR [Concomitant]
  4. LISINOPRIL [Concomitant]
  5. METOPROLOL TARTRATE [Concomitant]
  6. TRIAMTERENE (TRIAMTERENE) [Concomitant]

REACTIONS (2)
  - DIZZINESS [None]
  - HYPERTENSION [None]
